FAERS Safety Report 18094620 (Version 2)
Quarter: 2020Q3

REPORT INFORMATION
  Report Type: Spontaneous
  Country: US (occurrence: US)
  Receive Date: 20200730
  Receipt Date: 20200731
  Transmission Date: 20201103
  Serious: Yes (Other)
  Sender: FDA-Public Use
  Company Number: US-ROCHE-2647701

PATIENT
  Age: 79 Year
  Sex: Male

DRUGS (9)
  1. AMLODIPINE [Concomitant]
     Active Substance: AMLODIPINE BESYLATE
  2. PRAVACHOL [Concomitant]
     Active Substance: PRAVASTATIN SODIUM
  3. VITAMIN D3 [Concomitant]
     Active Substance: CHOLECALCIFEROL
  4. LEVOTHYROXINE. [Concomitant]
     Active Substance: LEVOTHYROXINE
  5. EZETIMIBE. [Concomitant]
     Active Substance: EZETIMIBE
  6. FUROSEMIDE. [Concomitant]
     Active Substance: FUROSEMIDE
  7. PANTOPRAZOLE [Concomitant]
     Active Substance: PANTOPRAZOLE
  8. ESBRIET [Suspect]
     Active Substance: PIRFENIDONE
     Indication: IDIOPATHIC PULMONARY FIBROSIS
     Dosage: ESBRIET 267 MG TAB?ONGOING: NO
     Route: 048
     Dates: start: 20191211
  9. ELIQUIS [Concomitant]
     Active Substance: APIXABAN

REACTIONS (1)
  - Renal failure [Unknown]

NARRATIVE: CASE EVENT DATE: 202006
